FAERS Safety Report 4311842-5 (Version None)
Quarter: 2004Q1

REPORT INFORMATION
  Report Type: 
  Country: None (occurrence: None)
  Receive Date: 20040302
  Receipt Date: 20031104
  Transmission Date: 20041129
  Serious: No
  Sender: FDA-Public Use
  Company Number: 200328053BWH

PATIENT
  Age: 69 Year
  Sex: Male

DRUGS (9)
  1. LEVITRA [Suspect]
     Indication: ERECTILE DYSFUNCTION
     Dosage: 10 MG, TOTAL DAILY, ORAL
     Route: 048
     Dates: start: 20031103
  2. ACCUPRIL [Concomitant]
  3. ALLOPURINOL [Concomitant]
  4. ASACOL [Concomitant]
  5. CUMADIN [Concomitant]
  6. FUROSEMIDE [Concomitant]
  7. LIPITOR [Concomitant]
  8. POTASSIUM [Concomitant]
  9. ASPIRIN [Concomitant]

REACTIONS (1)
  - ERECTILE DYSFUNCTION [None]
